FAERS Safety Report 9664660 (Version 1)
Quarter: 2013Q4

REPORT INFORMATION
  Report Type: Spontaneous
  Country: US (occurrence: US)
  Receive Date: 20131101
  Receipt Date: 20131101
  Transmission Date: 20140711
  Serious: Yes (Other)
  Sender: FDA-Public Use
  Company Number: US-TEVA-441602USA

PATIENT
  Age: 31 Year
  Sex: Female

DRUGS (7)
  1. HALOPERIDOL [Suspect]
     Indication: AGITATION
     Dosage: 5MG; THEN AS NEEDED (AVERAGE 4MG DAILY) ON DAY 2
     Route: 042
  2. HALOPERIDOL [Suspect]
     Dosage: AS NEEDED (AVERAGE 4MG DAILY)
     Route: 042
  3. OLANZAPINE [Suspect]
     Route: 048
  4. ONDANSETRON [Suspect]
     Indication: NAUSEA
     Route: 065
  5. METHADONE [Suspect]
     Indication: DRUG WITHDRAWAL SYNDROME
     Dosage: 3 X 10MG DOSES OVER 12 HOURS; THEN ORAL 5MG EVERY 6 HOURS ON DAY 14
     Route: 042
  6. METHADONE [Suspect]
     Indication: DRUG WITHDRAWAL SYNDROME
     Route: 048
  7. HYDROMORPHONE [Concomitant]
     Route: 065

REACTIONS (1)
  - Torsade de pointes [Recovering/Resolving]
